FAERS Safety Report 8625849-0 (Version None)
Quarter: 2012Q3

REPORT INFORMATION
  Report Type: 
  Country: None (occurrence: None)
  Receive Date: 20120827
  Receipt Date: 20120420
  Transmission Date: 20120928
  Serious: No
  Sender: FDA-Public Use
  Company Number: US-JHP PHARMACEUTICALS, LLC-JHP201200211

PATIENT
  Sex: Male

DRUGS (1)
  1. DELESTROGEN [Suspect]
     Indication: TRANSGENDER HORMONAL THERAPY
     Dosage: 10 MG, WEEKLY
     Route: 030
     Dates: start: 20120101

REACTIONS (4)
  - OFF LABEL USE [None]
  - RASH [None]
  - PRURITUS [None]
  - CONDITION AGGRAVATED [None]
